FAERS Safety Report 5654173-3 (Version None)
Quarter: 2008Q1

REPORT INFORMATION
  Report Type: 
  Country: None (occurrence: None)
  Receive Date: 20080306
  Receipt Date: 20080305
  Transmission Date: 20080703
  Serious: Yes (Other)
  Sender: FDA-Public Use
  Company Number: UG-BOEHRINGER INGELHEIM GMBH, GERMANY-2008-DE-01403GD

PATIENT

DRUGS (2)
  1. NEVIRAPINE [Suspect]
     Indication: HUMAN IMMUNODEFICIENCY VIRUS TRANSMISSION
  2. NEVIRAPINE [Suspect]
     Indication: PROPHYLAXIS

REACTIONS (1)
  - HIV INFECTION [None]
